FAERS Safety Report 10736375 (Version 1)
Quarter: 2015Q1

REPORT INFORMATION
  Report Type: Spontaneous
  Country: US (occurrence: US)
  Receive Date: 20150126
  Receipt Date: 20150126
  Transmission Date: 20150721
  Serious: Yes (Other)
  Sender: FDA-Public Use
  Company Number: US-BAYER-2015-007530

PATIENT

DRUGS (2)
  1. BAYER GENUINE ASPIRIN [Suspect]
     Active Substance: ASPIRIN
  2. MOTRIN [Suspect]
     Active Substance: IBUPROFEN

REACTIONS (2)
  - Haemorrhage [None]
  - Gastric haemorrhage [None]
